FAERS Safety Report 12351466 (Version 5)
Quarter: 2016Q3

REPORT INFORMATION
  Report Type: Spontaneous
  Country: CN (occurrence: CN)
  Receive Date: 20160510
  Receipt Date: 20160715
  Transmission Date: 20161109
  Serious: Yes (Death, Other)
  Sender: FDA-Public Use
  Company Number: CN-SA-2016SA090376

PATIENT
  Age: 63 Year
  Sex: Male
  Weight: 71 kg

DRUGS (2)
  1. TAXOTERE [Suspect]
     Active Substance: DOCETAXEL
     Indication: PROSTATE CANCER
     Dosage: ROUTE: IV GTT
     Dates: start: 20160502, end: 20160502
  2. ZOLEDRONIC ACID [Concomitant]
     Active Substance: ZOLEDRONIC ACID

REACTIONS (10)
  - White blood cell count decreased [Unknown]
  - Haemorrhage intracranial [Unknown]
  - Coagulopathy [Unknown]
  - Platelet count decreased [Unknown]
  - Lung infection [Unknown]
  - Prothrombin level increased [Unknown]
  - Prothrombin level decreased [Unknown]
  - International normalised ratio increased [Unknown]
  - Death [Fatal]
  - Haemoglobin decreased [Unknown]

NARRATIVE: CASE EVENT DATE: 20160502
